FAERS Safety Report 11589543 (Version 2)
Quarter: 2015Q4

REPORT INFORMATION
  Report Type: Spontaneous
  Country: US (occurrence: US)
  Receive Date: 20151002
  Receipt Date: 20151113
  Transmission Date: 20160304
  Serious: No
  Sender: FDA-Public Use
  Company Number: US-JNJFOC-20150819424

PATIENT
  Age: 29 Year
  Sex: Male

DRUGS (6)
  1. RISPERDAL CONSTA [Suspect]
     Active Substance: RISPERIDONE
     Indication: PSYCHOTIC DISORDER
     Route: 030
     Dates: start: 20090810, end: 20100304
  2. GAVISCON LIQUID [Concomitant]
     Indication: DYSPEPSIA
     Dosage: EVERY 6 HOURS, PRN (WHEN NEEDED)
     Route: 065
     Dates: start: 20090810, end: 20091019
  3. MILK OF MAGNESIA [Concomitant]
     Active Substance: MAGNESIUM HYDROXIDE
     Indication: CONSTIPATION
     Dosage: EVERY 24 HOURS, PRN (WHEN NEEDED)
     Route: 065
     Dates: start: 20090810, end: 20091019
  4. RESTORIL [Concomitant]
     Active Substance: TEMAZEPAM
     Indication: INSOMNIA
     Route: 065
     Dates: start: 20090810
  5. ZYPREXA ZYDIS [Concomitant]
     Active Substance: OLANZAPINE
     Indication: SCHIZOPHRENIA
     Route: 065
     Dates: start: 20090811
  6. TYLENOL [Concomitant]
     Active Substance: ACETAMINOPHEN
     Indication: PAIN
     Route: 065
     Dates: start: 20090810, end: 20091019

REACTIONS (2)
  - Foreign body [Unknown]
  - Device malfunction [Unknown]

NARRATIVE: CASE EVENT DATE: 20090813
